FAERS Safety Report 7234104-5 (Version None)
Quarter: 2011Q1

REPORT INFORMATION
  Report Type: 
  Country: None (occurrence: None)
  Receive Date: 20110119
  Receipt Date: 20110110
  Transmission Date: 20110831
  Serious: Yes (Hospitalization, Other)
  Sender: FDA-Public Use
  Company Number: US-ASTRAZENECA-2010SE47557

PATIENT
  Age: 44 Year
  Sex: Female

DRUGS (1)
  1. NEXIUM [Suspect]
     Route: 048

REACTIONS (9)
  - STAPHYLOCOCCAL INFECTION [None]
  - GASTROINTESTINAL DISORDER [None]
  - SHORT-BOWEL SYNDROME [None]
  - DRUG DOSE OMISSION [None]
  - IMPAIRED GASTRIC EMPTYING [None]
  - GASTRIC DISORDER [None]
  - SURGERY [None]
  - REGURGITATION [None]
  - FIBROMYALGIA [None]
